FAERS Safety Report 21158329 (Version 6)
Quarter: 2025Q4

REPORT INFORMATION
  Report Type: Report from Study
  Country: US (occurrence: US)
  Receive Date: 20220801
  Receipt Date: 20251010
  Transmission Date: 20260118
  Serious: Yes (Death, Hospitalization)
  Sender: ROCHE
  Company Number: US-ROCHE-3146692

PATIENT
  Age: 69 Year
  Sex: Male
  Weight: 95.25 kg

DRUGS (6)
  1. OCREVUS [Suspect]
     Active Substance: OCRELIZUMAB
     Indication: Primary progressive multiple sclerosis
     Dosage: 300 MG SINGLE-USE VIAL?600 MG EVERY 6 MONTH
     Route: 042
     Dates: start: 20220511
  2. OCREVUS [Suspect]
     Active Substance: OCRELIZUMAB
     Indication: Secondary progressive multiple sclerosis
     Dosage: ONGOING-YES, DATE OF SERVICE: 07/AUG/2024, 11/MAY/2022
     Route: 042
     Dates: end: 202508
  3. BACLOFEN [Concomitant]
     Active Substance: BACLOFEN
     Route: 048
  4. TEGRETOL [Concomitant]
     Active Substance: CARBAMAZEPINE
     Indication: Trigeminal neuralgia
     Route: 048
  5. MACROBID [Concomitant]
     Active Substance: NITROFURANTOIN\NITROFURANTOIN MONOHYDRATE
     Route: 048
     Dates: start: 2024
  6. PREGABALIN [Concomitant]
     Active Substance: PREGABALIN
     Route: 048

REACTIONS (18)
  - Urinary tract infection [Recovered/Resolved]
  - Visual impairment [Not Recovered/Not Resolved]
  - Visual tracking test abnormal [Not Recovered/Not Resolved]
  - Pancreatic carcinoma [Fatal]
  - Multiple sclerosis relapse [Recovered/Resolved]
  - Infection [Recovering/Resolving]
  - Blood immunoglobulin G decreased [Unknown]
  - Immunoglobulins decreased [Unknown]
  - Pyrexia [Unknown]
  - Pain [Unknown]
  - Musculoskeletal stiffness [Unknown]
  - Cardiac disorder [Unknown]
  - White blood cell count decreased [Unknown]
  - Gastrointestinal disorder [Unknown]
  - Dyspnoea [Unknown]
  - Neutrophil count decreased [Unknown]
  - Chest pain [Unknown]
  - Liver function test increased [Unknown]

NARRATIVE: CASE EVENT DATE: 20240301
